FAERS Safety Report 7669579-0 (Version None)
Quarter: 2011Q3

REPORT INFORMATION
  Report Type: 
  Country: None (occurrence: None)
  Receive Date: 20110808
  Receipt Date: 20110728
  Transmission Date: 20111222
  Serious: Yes (Other)
  Sender: FDA-Public Use
  Company Number: US-JNJFOC-20110800784

PATIENT
  Sex: Female
  Weight: 58.97 kg

DRUGS (11)
  1. FOLIC ACID [Concomitant]
     Route: 048
  2. LIPITOR [Concomitant]
     Route: 048
  3. SYNTHROID [Concomitant]
     Route: 048
  4. PLAVIX [Concomitant]
     Route: 048
  5. METHOTREXATE [Concomitant]
     Route: 048
  6. REMICADE [Suspect]
     Indication: RHEUMATOID ARTHRITIS
     Route: 042
     Dates: start: 20100101
  7. CILOSTAZOL [Concomitant]
     Route: 048
  8. AMLODIPINE [Concomitant]
     Route: 048
  9. HYDROCHLOROTHIAZIDE [Concomitant]
     Indication: HYPERTENSION
     Route: 048
  10. OMEPRAZOLE [Concomitant]
  11. PREDNISONE [Concomitant]
     Route: 048

REACTIONS (6)
  - DIARRHOEA [None]
  - COLONIC POLYP [None]
  - GASTROOESOPHAGEAL REFLUX DISEASE [None]
  - ABDOMINAL PAIN [None]
  - FLATULENCE [None]
  - NAUSEA [None]
